FAERS Safety Report 15397532 (Version 1)
Quarter: 2018Q3

REPORT INFORMATION
  Report Type: Spontaneous
  Country: US (occurrence: US)
  Receive Date: 20180918
  Receipt Date: 20180918
  Transmission Date: 20181010
  Serious: No
  Sender: FDA-Public Use
  Company Number: US-ASTRAZENECA-2018SF17885

PATIENT
  Age: 17403 Day
  Sex: Female
  Weight: 89.8 kg

DRUGS (1)
  1. BYDUREON [Suspect]
     Active Substance: EXENATIDE
     Indication: TYPE 2 DIABETES MELLITUS
     Route: 058
     Dates: start: 20180822

REACTIONS (5)
  - Product quality issue [Unknown]
  - Incorrect dose administered by device [Unknown]
  - Injection site extravasation [Recovered/Resolved]
  - Anxiety [Unknown]
  - Intentional product misuse [Recovered/Resolved]

NARRATIVE: CASE EVENT DATE: 20180912
